FAERS Safety Report 7025786-1 (Version None)
Quarter: 2010Q4

REPORT INFORMATION
  Report Type: 
  Country: None (occurrence: None)
  Receive Date: 20101004
  Receipt Date: 20100924
  Transmission Date: 20110411
  Serious: Yes (Hospitalization)
  Sender: FDA-Public Use
  Company Number: US-BIOGENIDEC-2010BI033032

PATIENT
  Age: 48 Year
  Sex: Male
  Weight: 117 kg

DRUGS (7)
  1. AVONEX [Suspect]
     Indication: MULTIPLE SCLEROSIS
     Route: 030
     Dates: start: 19961001
  2. PROVIGIL [Concomitant]
  3. FOLIC ACID [Concomitant]
  4. COUMADIN [Concomitant]
  5. BACLOFEN INFUSION [Concomitant]
  6. BACLOFEN [Concomitant]
     Route: 048
  7. PATCH (NOS) [Concomitant]
     Indication: EX-TOBACCO USER

REACTIONS (8)
  - BACK PAIN [None]
  - DIABETES MELLITUS [None]
  - DYSPNOEA [None]
  - LOSS OF CONSCIOUSNESS [None]
  - MUSCULOSKELETAL PAIN [None]
  - OXYGEN SUPPLEMENTATION [None]
  - PAIN IN EXTREMITY [None]
  - SLEEP APNOEA SYNDROME [None]
